FAERS Safety Report 9487024 (Version 1)
Quarter: 2013Q3

REPORT INFORMATION
  Report Type: Spontaneous
  Country: AU (occurrence: None)
  Receive Date: 20130823
  Receipt Date: 20130823
  Transmission Date: 20140515
  Serious: Yes (Other)
  Sender: FDA-Public Use
  Company Number: AUR-APL-2013-07045

PATIENT
  Age: 74 Year
  Sex: Female
  Weight: 69 kg

DRUGS (14)
  1. CEFAZOLIN [Suspect]
     Dates: start: 20120410, end: 20120510
  2. AMIODARONE [Suspect]
  3. ATORVASTATIN [Suspect]
     Dates: start: 20120409
  4. METOCLOPRAMIDE [Suspect]
  5. PLAVIX [Suspect]
  6. ASPIRIN (ACETYLSALICYLIC ACID) [Suspect]
     Dates: start: 20120409
  7. COVERSYL (PERINDOPRIL ERBUMINE) [Concomitant]
  8. DIAMICRON MR (GLICLAZIDE) [Concomitant]
  9. INSULIN GLARGINE [Concomitant]
  10. METFORMIN HYDROCHLORIDE [Concomitant]
  11. MINAX (METOPROLOL TARTRATE) [Concomitant]
  12. NORVASC (AMLODIPINE BESILATE) [Concomitant]
  13. PANAFCORTELONE (PREDNISOLONE) [Concomitant]
  14. RANITIDINE (RANITIDINE) [Concomitant]

REACTIONS (3)
  - Tubulointerstitial nephritis [None]
  - Psoas abscess [None]
  - Renal abscess [None]
